FAERS Safety Report 8843322 (Version 1)
Quarter: 2012Q4

REPORT INFORMATION
  Report Type: 
  Country: GB (occurrence: GB)
  Receive Date: 20121016
  Receipt Date: 20121016
  Transmission Date: 20130627
  Serious: Yes (Hospitalization)
  Sender: FDA-Public Use
  Company Number: GB-ARROW-2012-17143

PATIENT
  Age: 65 Year
  Sex: Female

DRUGS (1)
  1. TERBINAFINE HYDROCHLORIDE [Suspect]
     Indication: BODY TINEA
     Dosage: UNK
     Route: 048

REACTIONS (2)
  - Systemic lupus erythematosus [Recovered/Resolved]
  - Erythema multiforme [Recovered/Resolved]
